FAERS Safety Report 20667465 (Version 3)
Quarter: 2022Q3

REPORT INFORMATION
  Report Type: Spontaneous
  Country: IQ (occurrence: IQ)
  Receive Date: 20220404
  Receipt Date: 20220727
  Transmission Date: 20221026
  Serious: Yes (Other)
  Sender: FDA-Public Use
  Company Number: IQ-PFIZER INC-202200459959

PATIENT
  Age: 25 Year
  Sex: Male

DRUGS (1)
  1. ENBREL [Suspect]
     Active Substance: ETANERCEPT
     Indication: Product used for unknown indication
     Dosage: 50 MG, WEEKLY
     Route: 058

REACTIONS (3)
  - Dyskinesia [Unknown]
  - Hemiplegia [Unknown]
  - Retinitis [Unknown]
